FAERS Safety Report 18685722 (Version 1)
Quarter: 2020Q4

REPORT INFORMATION
  Report Type: Spontaneous
  Country: US (occurrence: US)
  Receive Date: 20201230
  Receipt Date: 20201230
  Transmission Date: 20210114
  Serious: No
  Sender: FDA-Public Use
  Company Number: US-BAYER-2020-284640

PATIENT
  Age: 76 Year
  Sex: Female
  Weight: 45 kg

DRUGS (2)
  1. MIRALAX [Suspect]
     Active Substance: POLYETHYLENE GLYCOL 3350
     Indication: CONSTIPATION
     Dosage: UNK
     Route: 065
     Dates: start: 2019
  2. EX-LAX [SENNA ALEXANDRINA] [Suspect]
     Active Substance: SENNA ALEXANDRINA WHOLE

REACTIONS (3)
  - Illness [None]
  - Abdominal distension [None]
  - Incorrect product administration duration [None]
